FAERS Safety Report 4457463-5 (Version None)
Quarter: 2004Q3

REPORT INFORMATION
  Report Type: 
  Country: None (occurrence: None)
  Receive Date: 20040921
  Receipt Date: 20040913
  Transmission Date: 20050211
  Serious: Yes (Hospitalization, Disabling)
  Sender: FDA-Public Use
  Company Number: A0525453A

PATIENT
  Age: 43 Year
  Sex: Female

DRUGS (1)
  1. AMOXIL [Suspect]
     Indication: DENTAL DISORDER PROPHYLAXIS
     Dosage: 500 MG/SEE DOSAGE TEXT/ORAL
     Route: 048

REACTIONS (4)
  - CONVULSION [None]
  - DEHYDRATION [None]
  - GRAND MAL CONVULSION [None]
  - MEDICATION ERROR [None]
